FAERS Safety Report 8532296-9 (Version None)
Quarter: 2012Q3

REPORT INFORMATION
  Report Type: 
  Country: None (occurrence: None)
  Receive Date: 20120724
  Receipt Date: 20120712
  Transmission Date: 20120928
  Serious: Yes (Hospitalization, Other)
  Sender: FDA-Public Use
  Company Number: MX-PAR PHARMACEUTICAL, INC-2012SCPR004506

PATIENT

DRUGS (5)
  1. LORAZEPAM [Concomitant]
     Indication: HUNTINGTON'S DISEASE
     Dosage: UPTO 12 MG, / DAY
     Route: 048
  2. OLANZAPINE [Suspect]
     Indication: PSYCHOMOTOR HYPERACTIVITY
     Dosage: 20 MG, / DAY
     Route: 065
  3. RISPERIDONE [Suspect]
     Indication: CATATONIA
     Dosage: 2 MG, UNKNOWN
     Route: 065
  4. ZUCLOPENTHIXOL [Suspect]
     Indication: AGGRESSION
     Dosage: UNK, UNKNOWN DEPOT
     Route: 065
  5. CLOZAPINE [Concomitant]
     Indication: HUNTINGTON'S DISEASE
     Dosage: 100 MG, / DAY
     Route: 065

REACTIONS (2)
  - CATATONIA [None]
  - CONDITION AGGRAVATED [None]
